FAERS Safety Report 12861918 (Version 3)
Quarter: 2019Q2

REPORT INFORMATION
  Report Type: Spontaneous
  Country: US (occurrence: US)
  Receive Date: 20161019
  Receipt Date: 20190509
  Transmission Date: 20190711
  Serious: No
  Sender: FDA-Public Use
  Company Number: US-PFIZER INC-2016485650

PATIENT
  Age: 88 Year
  Sex: Female
  Weight: 82 kg

DRUGS (17)
  1. ZANTAC [Concomitant]
     Active Substance: RANITIDINE HYDROCHLORIDE
     Dosage: 300 MG, 1X/DAY (NIGHTLY)
     Route: 048
  2. IBRANCE [Suspect]
     Active Substance: PALBOCICLIB
     Dosage: 75 MG, UNK
     Dates: start: 20151116
  3. CHOLECALCIFEROL [Concomitant]
     Active Substance: CHOLECALCIFEROL
     Dosage: 2000 IU, DAILY
     Route: 048
  4. ZOCOR [Concomitant]
     Active Substance: SIMVASTATIN
     Dosage: UNK, 1X/DAY (TAKE 1/2 (ONE-HALF) TABLET BY MOUTH AT BEDTIME)
     Route: 048
  5. FEMARA [Concomitant]
     Active Substance: LETROZOLE
     Dosage: 2.5 MG, 1X/DAY
     Route: 048
  6. SYNTHROID [Concomitant]
     Active Substance: LEVOTHYROXINE SODIUM
     Dosage: 112 UG, DAILY
     Route: 048
  7. METHYLCELLULOSE [Concomitant]
     Active Substance: METHYLCELLULOSES
     Dosage: UNK, 1X/DAY (EVERY NIGHT AT BEDTIME. 2 TABLESPOONS)
     Route: 048
  8. IBRANCE [Suspect]
     Active Substance: PALBOCICLIB
     Dosage: 75 MG, CYCLIC (4 DAYS ON AND 14 DAYS)
  9. VALIUM [Concomitant]
     Active Substance: DIAZEPAM
     Indication: ANXIETY
     Dosage: UNK, AS NEEDED (TAKE 1/2 (ONE-HALF) TABLET BY MOUTH TWICE DAILY PRN)
     Route: 048
  10. FERROUS SULFATE. [Concomitant]
     Active Substance: FERROUS SULFATE
     Dosage: 325 MG, DAILY
     Route: 048
  11. DESYREL [Concomitant]
     Active Substance: TRAZODONE HYDROCHLORIDE
     Dosage: 50 MG, 1X/DAY (EVERY EVENING)
     Route: 048
  12. NORCO [Concomitant]
     Active Substance: ACETAMINOPHEN\HYDROCODONE BITARTRATE
     Dosage: UNK, AS NEEDED, [HYDROCODONE: 5MG; ACETAMINOPHEN: 325MG], EVERY 4 (FOUR) HOURS AS NEEDED
     Route: 048
  13. IBRANCE [Suspect]
     Active Substance: PALBOCICLIB
     Indication: BREAST CANCER METASTATIC
     Dosage: 75 MG, CYCLIC (DAILY X 14 DAYS AM, 14 DAYS OFF)
     Route: 048
     Dates: start: 20150805, end: 2015
  14. NORVASC [Concomitant]
     Active Substance: AMLODIPINE BESYLATE
     Dosage: 5 MG, DAILY
     Route: 048
  15. CYANOCOBALAMIN. [Concomitant]
     Active Substance: CYANOCOBALAMIN
     Dosage: 1 DF, DAILY
     Route: 048
  16. NALOXEGOL OXALATE. [Concomitant]
     Active Substance: NALOXEGOL OXALATE
     Dosage: 25 MG, DAILY
     Route: 048
  17. CELEXA [Concomitant]
     Active Substance: CITALOPRAM HYDROBROMIDE
     Dosage: 20 MG, DAILY
     Route: 048

REACTIONS (2)
  - Product use issue [Unknown]
  - Gait disturbance [Unknown]
